FAERS Safety Report 11834386 (Version 2)
Quarter: 2015Q4

REPORT INFORMATION
  Report Type: Spontaneous
  Country: US (occurrence: US)
  Receive Date: 20151214
  Receipt Date: 20151231
  Transmission Date: 20160305
  Serious: Yes (Hospitalization, Other)
  Sender: FDA-Public Use
  Company Number: US-JNJFOC-20151124881

PATIENT
  Age: 73 Year
  Sex: Male

DRUGS (5)
  1. XARELTO [Suspect]
     Active Substance: RIVAROXABAN
     Indication: THROMBOSIS PROPHYLAXIS
     Dosage: 20 MG INITIALLY AND THEN??REDUCED TO 15 MG AFTER EYE??BLEED.
     Route: 048
     Dates: start: 20140201, end: 20140428
  2. XARELTO [Suspect]
     Active Substance: RIVAROXABAN
     Indication: CEREBROVASCULAR ACCIDENT PROPHYLAXIS
     Dosage: 20 MG INITIALLY AND THEN??REDUCED TO 15 MG AFTER EYE??BLEED.
     Route: 048
     Dates: start: 20140201, end: 20140428
  3. ELIQUIS [Suspect]
     Active Substance: APIXABAN
     Indication: PRODUCT USED FOR UNKNOWN INDICATION
     Route: 065
     Dates: start: 201404
  4. XARELTO [Suspect]
     Active Substance: RIVAROXABAN
     Indication: ATRIAL FIBRILLATION
     Dosage: 20 MG INITIALLY AND THEN??REDUCED TO 15 MG AFTER EYE??BLEED.
     Route: 048
     Dates: start: 20140201, end: 20140428
  5. BABY ASPIRIN [Suspect]
     Active Substance: ASPIRIN
     Indication: PRODUCT USED FOR UNKNOWN INDICATION
     Route: 065

REACTIONS (4)
  - Haemorrhage [Unknown]
  - Skin haemorrhage [Unknown]
  - Haemorrhagic stroke [Unknown]
  - Eye haemorrhage [Unknown]

NARRATIVE: CASE EVENT DATE: 20140401
